FAERS Safety Report 10982107 (Version 2)
Quarter: 2015Q2

REPORT INFORMATION
  Report Type: Spontaneous
  Country: US (occurrence: US)
  Receive Date: 20150403
  Receipt Date: 20150416
  Transmission Date: 20150821
  Serious: Yes (Other)
  Sender: FDA-Public Use
  Company Number: US-PFIZER INC-2015109728

PATIENT
  Sex: Male

DRUGS (3)
  1. DILANTIN [Suspect]
     Active Substance: PHENYTOIN
     Dosage: 230 MG, DAILY (200MG PLUS A 30MG )
  2. DILANTIN [Suspect]
     Active Substance: PHENYTOIN
     Dosage: 210 MG, 1X/DAY (3- 30MG CAPSULES EVERY MORNING, 2- 30MG CAPSULES AT LUNCH, 2- 30MG CAPSULES AT BED)
  3. DILANTIN [Suspect]
     Active Substance: PHENYTOIN
     Dosage: 240 MG, 1X/DAY (3- 30MG CAPSULES EVERY MORNING, 2- 30MG CAPSULES AT LUNCH, 3- 30MG CAPSULES AT BED)

REACTIONS (7)
  - Feeling abnormal [Unknown]
  - Drug level decreased [Unknown]
  - Seizure [Unknown]
  - Memory impairment [Unknown]
  - Drug level increased [Unknown]
  - Nervousness [Unknown]
  - Dizziness [Unknown]
